FAERS Safety Report 21368966 (Version 1)
Quarter: 2022Q3

REPORT INFORMATION
  Report Type: Spontaneous
  Country: CA (occurrence: CA)
  Receive Date: 20220923
  Receipt Date: 20220923
  Transmission Date: 20221027
  Serious: Yes (Other)
  Sender: FDA-Public Use
  Company Number: CA-CELLTRION INC.-2021CA018152

PATIENT

DRUGS (21)
  1. INFLECTRA [Suspect]
     Active Substance: INFLIXIMAB-DYYB
     Indication: Colitis ulcerative
     Dosage: 1 DF, WEEKLY, UNKNOWN DOSE
     Route: 042
     Dates: start: 201911, end: 201911
  2. INFLECTRA [Suspect]
     Active Substance: INFLIXIMAB-DYYB
     Dosage: 300 MG, WEEKLY, INDUCTION WEEK 0 DOSE
     Route: 042
     Dates: start: 20200311, end: 20200311
  3. INFLECTRA [Suspect]
     Active Substance: INFLIXIMAB-DYYB
     Dosage: 300 MG, WEEKLY, INDUCTION WEEK 2 DOSE
     Route: 042
     Dates: start: 20200326, end: 20200326
  4. INFLECTRA [Suspect]
     Active Substance: INFLIXIMAB-DYYB
     Dosage: 200 MG, WEEKLY
     Route: 042
     Dates: start: 20200428, end: 20200428
  5. INFLECTRA [Suspect]
     Active Substance: INFLIXIMAB-DYYB
     Dosage: 500 MG, EVERY 8 WEEKS
     Route: 042
     Dates: start: 20200617, end: 20210126
  6. INFLECTRA [Suspect]
     Active Substance: INFLIXIMAB-DYYB
     Dosage: 500 MG, EVERY 8 WEEKS
     Route: 042
     Dates: start: 20200617, end: 20210127
  7. INFLECTRA [Suspect]
     Active Substance: INFLIXIMAB-DYYB
     Dosage: 500 MG, EVERY 6 WEEKS
     Route: 042
     Dates: start: 20210308
  8. INFLECTRA [Suspect]
     Active Substance: INFLIXIMAB-DYYB
     Dosage: 500 MG, EVERY 8 WEEKS
     Route: 042
     Dates: start: 20211116, end: 20211116
  9. INFLECTRA [Suspect]
     Active Substance: INFLIXIMAB-DYYB
     Dosage: 500 MG, EVERY 8 WEEKS
     Route: 042
     Dates: start: 20220208
  10. INFLECTRA [Suspect]
     Active Substance: INFLIXIMAB-DYYB
     Dosage: 500 MG, EVERY 8 WEEKS
     Route: 042
     Dates: start: 20220726
  11. INFLECTRA [Suspect]
     Active Substance: INFLIXIMAB-DYYB
     Dosage: 500 MG, EVERY 8 WEEKS
     Route: 042
     Dates: start: 20220908
  12. INFLECTRA [Suspect]
     Active Substance: INFLIXIMAB-DYYB
     Dosage: 500 MG, EVERY 8 WEEKS
     Route: 042
     Dates: start: 20220908
  13. INFLECTRA [Suspect]
     Active Substance: INFLIXIMAB-DYYB
     Dosage: 500 MG, EVERY 8 WEEKS
     Route: 042
     Dates: start: 20220908
  14. ACETAMINOPHEN [Concomitant]
     Active Substance: ACETAMINOPHEN
     Indication: Premedication
     Dosage: UNK
     Dates: start: 20220908, end: 20220908
  15. AZATHIOPRINE [Concomitant]
     Active Substance: AZATHIOPRINE
     Dosage: UNK
  16. BENADRYL [Concomitant]
     Active Substance: DIPHENHYDRAMINE HYDROCHLORIDE
     Dosage: UNK
     Dates: start: 20220908, end: 20220908
  17. GRAVOL [Concomitant]
     Active Substance: DIMENHYDRINATE
     Indication: Premedication
     Dosage: 50 MG (15-30 MIN PRE-INFLECTRA)
     Route: 042
     Dates: start: 20220908, end: 20220908
  18. HYDROCORTISONE [Concomitant]
     Active Substance: HYDROCORTISONE
     Indication: Premedication
     Dosage: UNK
     Dates: start: 20220908, end: 20220908
  19. MESALAMINE [Concomitant]
     Active Substance: MESALAMINE
     Dosage: UNK
  20. PREDNISONE [Concomitant]
     Active Substance: PREDNISONE
     Dosage: UNK
  21. VYVANSE [Concomitant]
     Active Substance: LISDEXAMFETAMINE DIMESYLATE
     Dosage: UNK

REACTIONS (9)
  - Nausea [Recovering/Resolving]
  - Fall [Unknown]
  - Concussion [Not Recovered/Not Resolved]
  - Headache [Not Recovered/Not Resolved]
  - Infusion site pain [Unknown]
  - Ocular hyperaemia [Not Recovered/Not Resolved]
  - Ocular discomfort [Not Recovered/Not Resolved]
  - Hot flush [Not Recovered/Not Resolved]
  - Off label use [Unknown]

NARRATIVE: CASE EVENT DATE: 20211101
